FAERS Safety Report 14453120 (Version 4)
Quarter: 2018Q3

REPORT INFORMATION
  Report Type: Spontaneous
  Country: US (occurrence: US)
  Receive Date: 20180129
  Receipt Date: 20180824
  Transmission Date: 20181010
  Serious: Yes (Other)
  Sender: FDA-Public Use
  Company Number: US-BRISTOL-MYERS SQUIBB COMPANY-BMS-2018-004458

PATIENT
  Sex: Female

DRUGS (1)
  1. ORENCIA [Suspect]
     Active Substance: ABATACEPT
     Indication: RHEUMATOID ARTHRITIS
     Dosage: 125 MG, QWK
     Route: 058
     Dates: start: 201708

REACTIONS (6)
  - Nervous system disorder [Unknown]
  - Hernia [Unknown]
  - Drug ineffective [Unknown]
  - Neck pain [Unknown]
  - Peripheral swelling [Unknown]
  - Swelling [Unknown]
